FAERS Safety Report 5656588-6 (Version None)
Quarter: 2008Q1

REPORT INFORMATION
  Report Type: 
  Country: None (occurrence: None)
  Receive Date: 20080219
  Receipt Date: 20071220
  Transmission Date: 20080703
  Serious: No
  Sender: FDA-Public Use
  Company Number: WAES 0712USA08415

PATIENT
  Age: 83 Year
  Sex: Female

DRUGS (10)
  1. JANUVIA [Suspect]
     Indication: TYPE 2 DIABETES MELLITUS
     Dosage: PO
     Route: 048
     Dates: start: 20071206, end: 20071220
  2. ACTONEL [Concomitant]
  3. COZAAR [Concomitant]
  4. DYAZIDE [Concomitant]
  5. NORVASC [Concomitant]
  6. ZOCOR [Concomitant]
  7. ATENOLOL [Concomitant]
  8. CLONIDINE [Concomitant]
  9. LEVOTHYROXINE SODIUM [Concomitant]
  10. LISINOPRIL [Concomitant]

REACTIONS (1)
  - CARDIAC FLUTTER [None]
